FAERS Safety Report 4534849-1 (Version None)
Quarter: 2004Q4

REPORT INFORMATION
  Report Type: 
  Country: None (occurrence: None)
  Receive Date: 20041222
  Receipt Date: 20040503
  Transmission Date: 20050328
  Serious: No
  Sender: FDA-Public Use
  Company Number: US-BRISTOL-MYERS SQUIBB COMPANY-12579157

PATIENT
  Age: 77 Year
  Sex: Female
  Weight: 49 kg

DRUGS (5)
  1. PRAVACHOL [Suspect]
     Indication: TRANSIENT ISCHAEMIC ATTACK
     Dates: start: 20030301
  2. PLAVIX [Suspect]
     Indication: TRANSIENT ISCHAEMIC ATTACK
     Route: 048
     Dates: start: 20030301
  3. ASPIRIN [Concomitant]
     Dosage: TAKEN FOR ^A FEW YEARS^
  4. MULTI-VITAMIN [Concomitant]
     Dosage: TAKEN FOR ^SEVERAL YEARS^
  5. VITAMIN B COMPLEX CAP [Concomitant]
     Dates: start: 20030801

REACTIONS (2)
  - BACK PAIN [None]
  - TRANSIENT ISCHAEMIC ATTACK [None]
